FAERS Safety Report 5258819-3 (Version None)
Quarter: 2007Q1

REPORT INFORMATION
  Report Type: 
  Country: None (occurrence: None)
  Receive Date: 20070306
  Receipt Date: 20070306
  Transmission Date: 20070707
  Serious: No
  Sender: FDA-Public Use
  Company Number: None

PATIENT
  Age: 41 Year
  Sex: Female
  Weight: 62.5964 kg

DRUGS (1)
  1. LEVAQUIN [Suspect]
     Indication: SINUSITIS
     Dates: start: 20061114, end: 20061117

REACTIONS (4)
  - ARTHRALGIA [None]
  - NECK PAIN [None]
  - PAIN IN EXTREMITY [None]
  - PLANTAR FASCIITIS [None]
